FAERS Safety Report 12473777 (Version 5)
Quarter: 2016Q3

REPORT INFORMATION
  Report Type: Spontaneous
  Country: JP (occurrence: JP)
  Receive Date: 20160616
  Receipt Date: 20160829
  Transmission Date: 20161109
  Serious: Yes (Other)
  Sender: FDA-Public Use
  Company Number: JP-TAKEDA-2016MPI004875

PATIENT
  Age: 71 Year
  Sex: Female
  Weight: 58 kg

DRUGS (7)
  1. VELCADE [Suspect]
     Active Substance: BORTEZOMIB
     Dosage: 2 MG, QD
     Route: 058
     Dates: start: 20160524, end: 20160524
  2. ENDOXAN                            /00021101/ [Concomitant]
     Active Substance: CYCLOPHOSPHAMIDE
     Indication: PLASMA CELL MYELOMA
     Dosage: UNK
     Route: 065
     Dates: start: 20160517, end: 20160523
  3. VELCADE [Suspect]
     Active Substance: BORTEZOMIB
     Indication: PLASMA CELL MYELOMA
     Dosage: 2 MG, QD
     Route: 058
     Dates: start: 20160517, end: 20160517
  4. DECADRON [Concomitant]
     Active Substance: DEXAMETHASONE
     Indication: PLASMA CELL MYELOMA
     Dosage: 20 MG, BID
     Route: 048
     Dates: start: 20160517, end: 20160524
  5. LENADEX [Concomitant]
     Active Substance: DEXAMETHASONE ACETATE
     Dosage: 20 MG, QD
     Route: 048
     Dates: start: 20160517, end: 20160524
  6. VELCADE [Suspect]
     Active Substance: BORTEZOMIB
     Dosage: 2 MG, QD
     Route: 058
     Dates: start: 20160527, end: 20160527
  7. VELCADE [Suspect]
     Active Substance: BORTEZOMIB
     Dosage: 2 MG, QD
     Route: 058
     Dates: start: 20160520, end: 20160520

REACTIONS (1)
  - Inappropriate antidiuretic hormone secretion [Recovered/Resolved]

NARRATIVE: CASE EVENT DATE: 20160519
